FAERS Safety Report 8127831-9 (Version None)
Quarter: 2012Q1

REPORT INFORMATION
  Report Type: 
  Country: None (occurrence: None)
  Receive Date: 20120210
  Receipt Date: 20110714
  Transmission Date: 20120608
  Serious: No
  Sender: FDA-Public Use
  Company Number: US-GLAXOSMITHKLINE-A0937187A

PATIENT
  Sex: Female

DRUGS (1)
  1. PAROXETINE [Suspect]
     Indication: PANIC DISORDER
     Dosage: 20MG PER DAY
     Route: 065
     Dates: start: 20080401

REACTIONS (1)
  - MATERNAL EXPOSURE DURING PREGNANCY [None]
